APPROVED DRUG PRODUCT: ISOETHARINE HYDROCHLORIDE
Active Ingredient: ISOETHARINE HYDROCHLORIDE
Strength: 0.08%
Dosage Form/Route: SOLUTION;INHALATION
Application: A088187 | Product #001
Applicant: DEY LP
Approved: Dec 3, 1982 | RLD: No | RS: No | Type: DISCN